FAERS Safety Report 5788698-7 (Version None)
Quarter: 2008Q2

REPORT INFORMATION
  Report Type: 
  Country: None (occurrence: None)
  Receive Date: 20080618
  Receipt Date: 20071119
  Transmission Date: 20081010
  Serious: Yes (Other)
  Sender: FDA-Public Use
  Company Number: 200718150US

PATIENT
  Age: 51 Year
  Sex: Male

DRUGS (9)
  1. LANTUS [Suspect]
     Indication: TYPE 2 DIABETES MELLITUS
     Dosage: 35 U QD INJ
  2. INSULIN LISPRO (HUMALOG /01293501/) [Concomitant]
  3. METOPROLOL SUCCINATE [Concomitant]
  4. CLOPIDOGREL (PLAVIX /01220701/) [Concomitant]
  5. SYNTHROID [Concomitant]
  6. ESCITALOPRAM OXALATE [Concomitant]
  7. OMEPRAZOLE [Concomitant]
  8. AMLODIPINE, BENAZEPRIL HYDROCHLORIDE (LOTREL /01289101/) [Concomitant]
  9. ZETIA [Concomitant]

REACTIONS (2)
  - BLOOD GLUCOSE INCREASED [None]
  - HYPOGLYCAEMIC SEIZURE [None]
